FAERS Safety Report 6271932-7 (Version None)
Quarter: 2009Q3

REPORT INFORMATION
  Report Type: 
  Country: None (occurrence: None)
  Receive Date: 20090717
  Receipt Date: 20090708
  Transmission Date: 20100115
  Serious: Yes (Other)
  Sender: FDA-Public Use
  Company Number: GB-PFIZER INC-2008064175

PATIENT
  Age: 56 Year

DRUGS (18)
  1. DIFLUCAN [Suspect]
     Dosage: 50 MG, 1X/DAY
     Route: 048
     Dates: start: 20080703, end: 20080709
  2. FUSIDATE SODIUM [Concomitant]
     Indication: BREAST ABSCESS
     Dosage: 250 MG, 3X/DAY
     Route: 048
     Dates: start: 20080625, end: 20080701
  3. FLUCLOXACILLIN [Concomitant]
     Indication: BREAST ABSCESS
     Dosage: 500 MG, 4X/DAY
     Route: 048
     Dates: start: 20080625, end: 20080701
  4. BUMETANIDE [Concomitant]
     Indication: OEDEMA
     Dosage: 1 MG, 1X/DAY
     Dates: start: 19980122
  5. PAROXETINE [Concomitant]
     Indication: ANXIETY
     Dosage: 30 MG, 1X/DAY
     Dates: start: 19990116
  6. PAROXETINE [Concomitant]
     Indication: DEPRESSION
  7. QUININE SULPHATE [Concomitant]
     Indication: MUSCLE SPASMS
     Dosage: 300 MG, 1X/DAY
     Dates: start: 19991111
  8. LOPERAMIDE [Concomitant]
     Indication: IRRITABLE BOWEL SYNDROME
     Dosage: UNK MG, AS NEEDED
     Dates: start: 20010828
  9. CLOPIDOGREL [Concomitant]
     Indication: MYOCARDIAL ISCHAEMIA
     Dosage: 75 MG, 1X/DAY
     Dates: start: 20010524
  10. DIAZEPAM [Concomitant]
     Indication: ANXIETY
     Dosage: 2 MG, 1X/DAY
     Dates: start: 19980928
  11. ESOMEPRAZOLE [Concomitant]
     Indication: REFLUX OESOPHAGITIS
     Dosage: 40 MG, UNK
     Dates: start: 20030915
  12. DOMPERIDONE [Concomitant]
     Indication: REFLUX OESOPHAGITIS
     Dosage: 10 MG, 3X/DAY
     Dates: start: 20011011
  13. METFORMIN HYDROCHLORIDE [Concomitant]
     Indication: DIABETES MELLITUS
     Dosage: 500 MG, 3X/DAY
     Dates: start: 20050208
  14. ACETAMINOPHEN AND CODEINE PHOSPHATE [Concomitant]
     Indication: ARTHRALGIA
     Dosage: UNK
     Route: 048
     Dates: start: 20051201
  15. ACETAMINOPHEN AND CODEINE PHOSPHATE [Concomitant]
     Indication: DIABETIC NEUROPATHY
  16. GABAPENTIN [Concomitant]
     Indication: DIABETIC NEUROPATHY
     Dosage: 300 MG, 3X/DAY
     Dates: start: 20050304
  17. IRBESARTAN [Concomitant]
     Indication: HYPERTENSION
     Dosage: 150 MG, 1X/DAY
     Dates: start: 20061204
  18. GLIPIZIDE [Concomitant]
     Indication: TYPE 2 DIABETES MELLITUS
     Dosage: 8.5 MG, 1X/DAY
     Dates: start: 20071221

REACTIONS (2)
  - AGEUSIA [None]
  - ANOSMIA [None]
